FAERS Safety Report 9434297 (Version 1)
Quarter: 2013Q3

REPORT INFORMATION
  Report Type: Spontaneous
  Country: FR (occurrence: FR)
  Receive Date: 20130801
  Receipt Date: 20130801
  Transmission Date: 20140515
  Serious: Yes (Hospitalization)
  Sender: FDA-Public Use
  Company Number: FR-ELI_LILLY_AND_COMPANY-FR201307007205

PATIENT
  Age: 41 Year
  Sex: Male

DRUGS (10)
  1. ZYPREXA [Suspect]
     Dosage: 10 MG, QD
     Route: 048
  2. DEPAKINE /00228501/ [Suspect]
     Dosage: 500 MG, QD
     Route: 048
  3. MOPRAL /00661201/ [Suspect]
     Dosage: 20 MG, QD
     Route: 048
     Dates: end: 20130602
  4. FLUANXOL /00109702/ [Suspect]
     Route: 048
  5. LYSANXIA [Suspect]
     Route: 048
  6. HAVLANE [Suspect]
     Route: 048
  7. PARKINANE [Suspect]
     Route: 048
  8. DITROPAN [Suspect]
     Route: 048
  9. METEOSPASMYL                       /01017401/ [Concomitant]
  10. LANSOYL [Concomitant]

REACTIONS (2)
  - Rectal haemorrhage [Not Recovered/Not Resolved]
  - Thrombocytopenia [Not Recovered/Not Resolved]
